FAERS Safety Report 5557402-X (Version None)
Quarter: 2007Q4

REPORT INFORMATION
  Report Type: 
  Country: None (occurrence: None)
  Receive Date: 20071211
  Receipt Date: 20071126
  Transmission Date: 20080405
  Serious: Yes (Other)
  Sender: FDA-Public Use
  Company Number: GXKR2007PL10260

PATIENT
  Sex: Male

DRUGS (3)
  1. VERAPAMIL [Suspect]
     Dosage: TRANSPLACENTAL
     Route: 064
  2. METHYLDOPA [Suspect]
     Dosage: TRANSPLACENTAL
     Route: 064
  3. HORMONES(HORMONES) [Suspect]
     Dosage: TRANSPLACENTAL
     Route: 064

REACTIONS (3)
  - CAESAREAN SECTION [None]
  - DRUG EXPOSURE DURING PREGNANCY [None]
  - SMALL FOR DATES BABY [None]
